FAERS Safety Report 6035393-5 (Version None)
Quarter: 2009Q1

REPORT INFORMATION
  Report Type: 
  Country: None (occurrence: None)
  Receive Date: 20090112
  Receipt Date: 20090112
  Transmission Date: 20090719
  Serious: Yes (Death, Hospitalization)
  Sender: FDA-Public Use
  Company Number: None

PATIENT
  Age: 46 Year
  Sex: Female
  Weight: 76.2 kg

DRUGS (1)
  1. SIMVASTATIN (STRENGTH UNKNOWN) [Suspect]
     Indication: HYPERLIPIDAEMIA
     Dates: start: 20081101, end: 20081201

REACTIONS (4)
  - ACUTE HEPATIC FAILURE [None]
  - HYPOTENSION [None]
  - MENTAL STATUS CHANGES [None]
  - PYREXIA [None]
